FAERS Safety Report 5180034-2 (Version None)
Quarter: 2006Q4

REPORT INFORMATION
  Report Type: 
  Country: None (occurrence: None)
  Receive Date: 20061219
  Receipt Date: 20061007
  Transmission Date: 20070319
  Serious: No
  Sender: FDA-Public Use
  Company Number: US-AMGEN-KDL197674

PATIENT
  Sex: Male

DRUGS (3)
  1. ENBREL [Suspect]
     Indication: DRUG USE FOR UNKNOWN INDICATION
     Route: 058
     Dates: start: 20041101
  2. LYRICA [Concomitant]
  3. HYDROCODONE BITARTRATE [Concomitant]

REACTIONS (1)
  - ARTHRALGIA [None]
